FAERS Safety Report 7357573-9 (Version None)
Quarter: 2011Q1

REPORT INFORMATION
  Report Type: 
  Country: None (occurrence: None)
  Receive Date: 20110309
  Receipt Date: 20110221
  Transmission Date: 20110831
  Serious: Yes (Hospitalization, Other)
  Sender: FDA-Public Use
  Company Number: 2011MA001597

PATIENT
  Age: 7 Year
  Sex: Male

DRUGS (2)
  1. PHENOBARBITAL ELIXIR USP (ALPHARMA) (PHENOBARBITAL) [Suspect]
     Indication: BRAIN NEOPLASM
  2. COTRIM [Concomitant]

REACTIONS (1)
  - TOXIC EPIDERMAL NECROLYSIS [None]
